FAERS Safety Report 23570144 (Version 1)
Quarter: 2024Q1

REPORT INFORMATION
  Report Type: Spontaneous
  Country: US (occurrence: US)
  Receive Date: 20240227
  Receipt Date: 20240227
  Transmission Date: 20240409
  Serious: No
  Sender: FDA-Public Use
  Company Number: US-BIOVITRUM-2024-US-002769

PATIENT
  Sex: Female
  Weight: 11.33 kg

DRUGS (1)
  1. SYNAGIS [Suspect]
     Active Substance: PALIVIZUMAB
     Indication: Premature baby
     Dosage: ONCE A MONTH
     Route: 030

REACTIONS (2)
  - Illness [Not Recovered/Not Resolved]
  - Intentional dose omission [Not Recovered/Not Resolved]
